FAERS Safety Report 9827207 (Version 1)
Quarter: 2013Q4

REPORT INFORMATION
  Report Type: Spontaneous
  Country: US (occurrence: None)
  Receive Date: 20131223
  Receipt Date: 20131223
  Transmission Date: 20140711
  Serious: No
  Sender: FDA-Public Use
  Company Number: 220987LEO

PATIENT
  Age: 84 Year
  Sex: Male

DRUGS (5)
  1. PICATO [Suspect]
     Indication: ROSACEA
     Route: 061
     Dates: start: 20130314, end: 20130316
  2. SOLARIZE (DICLOFENAC SODIUM)(GEL) [Concomitant]
  3. PROTOPIC (TRACROLIMUS) (CREAM) [Concomitant]
  4. BLOOD PRESSURE MEDICATION (AMTIHYPERTENSIVES) [Concomitant]
  5. HIGH CHLOESTEROL MEDICATION (LIPID MODIFYING AGENTS) [Concomitant]

REACTIONS (6)
  - Application site vesicles [None]
  - Application site erythema [None]
  - Application site scab [None]
  - Application site irritation [None]
  - Off label use [None]
  - Drug administered at inappropriate site [None]
